FAERS Safety Report 24934427 (Version 3)
Quarter: 2025Q1

REPORT INFORMATION
  Report Type: Report from Study
  Country: AR (occurrence: AR)
  Receive Date: 20250206
  Receipt Date: 20250320
  Transmission Date: 20250408
  Serious: Yes (Other)
  Sender: AMGEN
  Company Number: AR-AMGEN-ARGSL2025000226

PATIENT
  Age: 66 Year
  Sex: Male

DRUGS (1)
  1. VECTIBIX [Suspect]
     Active Substance: PANITUMUMAB
     Indication: Colorectal cancer
     Route: 040
     Dates: start: 20241218

REACTIONS (8)
  - Tumour marker increased [Unknown]
  - Colitis [Unknown]
  - Skin discolouration [Unknown]
  - Photosensitivity reaction [Unknown]
  - Scab [Unknown]
  - Nausea [Unknown]
  - Acne [Not Recovered/Not Resolved]
  - Erythema [Unknown]
